FAERS Safety Report 13852401 (Version 2)
Quarter: 2017Q3

REPORT INFORMATION
  Report Type: Spontaneous
  Country: US (occurrence: US)
  Receive Date: 20170810
  Receipt Date: 20170928
  Transmission Date: 20171127
  Serious: Yes (Hospitalization)
  Sender: FDA-Public Use
  Company Number: US-PFIZER INC-2017343712

PATIENT
  Age: 67 Year
  Sex: Female

DRUGS (1)
  1. LYRICA [Suspect]
     Active Substance: PREGABALIN
     Indication: POLYNEUROPATHY IN MALIGNANT DISEASE
     Dosage: 200 MG, 2X/DAY, (200 MG MORN, 200 MG EVEN)

REACTIONS (4)
  - Withdrawal syndrome [Recovered/Resolved]
  - Product use in unapproved indication [Unknown]
  - Malaise [Unknown]
  - Abdominal pain upper [Unknown]
